FAERS Safety Report 18459793 (Version 2)
Quarter: 2021Q1

REPORT INFORMATION
  Report Type: Report from Study
  Country: US (occurrence: US)
  Receive Date: 20201104
  Receipt Date: 20210105
  Transmission Date: 20210419
  Serious: No
  Sender: FDA-Public Use
  Company Number: US-BRISTOL-MYERS SQUIBB COMPANY-BMS-2020-091731

PATIENT
  Age: 51 Year
  Sex: Female
  Weight: 67.57 kg

DRUGS (1)
  1. ABATACEPT [Suspect]
     Active Substance: ABATACEPT
     Indication: RHEUMATOID ARTHRITIS
     Dosage: 125 MILLIGRAM, QWK
     Route: 058
     Dates: start: 201703

REACTIONS (3)
  - Device malfunction [Unknown]
  - Injury associated with device [Unknown]
  - Product leakage [Unknown]

NARRATIVE: CASE EVENT DATE: 20201029
